FAERS Safety Report 8941779 (Version 4)
Quarter: 2013Q2

REPORT INFORMATION
  Report Type: Spontaneous
  Country: US (occurrence: US)
  Receive Date: 20121203
  Receipt Date: 20130514
  Transmission Date: 20140414
  Serious: No
  Sender: FDA-Public Use
  Company Number: US-009507513-1211USA010253

PATIENT
  Age: 57 Year
  Sex: Female
  Weight: 53.52 kg

DRUGS (6)
  1. VICTRELIS [Suspect]
     Dosage: TAKE 4 CAPSULES BY MOUTH THREE TIMES A DAY
     Route: 048
  2. PEGASYS [Suspect]
  3. RIBAPAK [Suspect]
     Dosage: 200MG/DAY
  4. PROCRIT [Concomitant]
     Indication: ANAEMIA
     Dosage: 2000/ML
  5. ADVAIR [Concomitant]
     Dosage: 45/21
  6. NEUPOGEN [Concomitant]
     Indication: WHITE BLOOD CELL COUNT DECREASED
     Dosage: UNK
     Dates: start: 20121102

REACTIONS (24)
  - Weight increased [Unknown]
  - Nausea [Unknown]
  - Vomiting [Unknown]
  - Dysgeusia [Unknown]
  - Decreased appetite [Unknown]
  - Mood swings [Unknown]
  - Rash pruritic [Recovered/Resolved]
  - Scar [Recovered/Resolved]
  - Influenza like illness [Recovered/Resolved]
  - Swelling face [Unknown]
  - Eyelid disorder [Unknown]
  - Scratch [Recovered/Resolved]
  - Platelet count decreased [Unknown]
  - Weight decreased [Recovered/Resolved]
  - Alopecia [Unknown]
  - Retching [Unknown]
  - Adverse event [Unknown]
  - Impatience [Unknown]
  - Asthenia [Unknown]
  - Decreased appetite [Unknown]
  - Abdominal distension [Unknown]
  - Local swelling [Unknown]
  - Local swelling [Unknown]
  - Joint swelling [Unknown]
